FAERS Safety Report 24006594 (Version 5)
Quarter: 2025Q4

REPORT INFORMATION
  Report Type: Report from Study
  Country: EU (occurrence: EU)
  Receive Date: 20240624
  Receipt Date: 20251222
  Transmission Date: 20260118
  Serious: Yes (Hospitalization, Other)
  Sender: MYLAN
  Company Number: EU-002147023-NVSC2023DE262193

PATIENT
  Sex: Male

DRUGS (48)
  1. METHOTREXATE [Suspect]
     Active Substance: METHOTREXATE
     Indication: Psoriatic arthropathy
     Dosage: 20 MILLIGRAM
  2. METHOTREXATE [Suspect]
     Active Substance: METHOTREXATE
     Dosage: 20 MILLIGRAM
  3. METHOTREXATE [Suspect]
     Active Substance: METHOTREXATE
     Dosage: 20 MILLIGRAM
     Route: 058
  4. METHOTREXATE [Suspect]
     Active Substance: METHOTREXATE
     Dosage: 20 MILLIGRAM
     Route: 058
  5. METHOTREXATE [Suspect]
     Active Substance: METHOTREXATE
     Dosage: 20 MILLIGRAM, QW
     Dates: start: 20201125
  6. METHOTREXATE [Suspect]
     Active Substance: METHOTREXATE
     Dosage: 20 MILLIGRAM, QW
     Dates: start: 20201125
  7. METHOTREXATE [Suspect]
     Active Substance: METHOTREXATE
     Dosage: 20 MILLIGRAM, QW
     Route: 058
     Dates: start: 20201125
  8. METHOTREXATE [Suspect]
     Active Substance: METHOTREXATE
     Dosage: 20 MILLIGRAM, QW
     Route: 058
     Dates: start: 20201125
  9. ACEMETACIN [Suspect]
     Active Substance: ACEMETACIN
     Indication: Psoriatic arthropathy
     Dosage: 180 MILLIGRAM
  10. ACEMETACIN [Suspect]
     Active Substance: ACEMETACIN
     Dosage: 180 MILLIGRAM
  11. ACEMETACIN [Suspect]
     Active Substance: ACEMETACIN
     Dosage: 180 MILLIGRAM
     Route: 065
  12. ACEMETACIN [Suspect]
     Active Substance: ACEMETACIN
     Dosage: 180 MILLIGRAM
     Route: 065
  13. ACEMETACIN [Suspect]
     Active Substance: ACEMETACIN
     Dosage: 180 MILLIGRAM
     Route: 065
     Dates: start: 20201215, end: 20220903
  14. ACEMETACIN [Suspect]
     Active Substance: ACEMETACIN
     Dosage: 180 MILLIGRAM
     Dates: start: 20201215, end: 20220903
  15. ACEMETACIN [Suspect]
     Active Substance: ACEMETACIN
     Dosage: 180 MILLIGRAM
     Dates: start: 20201215, end: 20220903
  16. ACEMETACIN [Suspect]
     Active Substance: ACEMETACIN
     Dosage: 180 MILLIGRAM
     Route: 065
     Dates: start: 20201215, end: 20220903
  17. ACEMETACIN [Suspect]
     Active Substance: ACEMETACIN
     Dosage: 180 MILLIGRAM, QW, 7 DAYS PER WEEK
     Route: 065
     Dates: start: 20220919
  18. ACEMETACIN [Suspect]
     Active Substance: ACEMETACIN
     Dosage: 180 MILLIGRAM, QW, 7 DAYS PER WEEK
     Route: 065
     Dates: start: 20220919
  19. ACEMETACIN [Suspect]
     Active Substance: ACEMETACIN
     Dosage: 180 MILLIGRAM, QW, 7 DAYS PER WEEK
     Dates: start: 20220919
  20. ACEMETACIN [Suspect]
     Active Substance: ACEMETACIN
     Dosage: 180 MILLIGRAM, QW, 7 DAYS PER WEEK
     Dates: start: 20220919
  21. ACEMETACIN [Suspect]
     Active Substance: ACEMETACIN
     Dosage: 180 MILLIGRAM
  22. ACEMETACIN [Suspect]
     Active Substance: ACEMETACIN
     Dosage: 180 MILLIGRAM
  23. ACEMETACIN [Suspect]
     Active Substance: ACEMETACIN
     Dosage: 180 MILLIGRAM
     Route: 065
  24. ACEMETACIN [Suspect]
     Active Substance: ACEMETACIN
     Dosage: 180 MILLIGRAM
     Route: 065
  25. COSENTYX [Suspect]
     Active Substance: SECUKINUMAB
     Indication: Psoriatic arthropathy
     Dosage: 300 MILLIGRAM
  26. COSENTYX [Suspect]
     Active Substance: SECUKINUMAB
     Dosage: 300 MILLIGRAM
  27. COSENTYX [Suspect]
     Active Substance: SECUKINUMAB
     Dosage: 300 MILLIGRAM
     Route: 065
  28. COSENTYX [Suspect]
     Active Substance: SECUKINUMAB
     Dosage: 300 MILLIGRAM
     Route: 065
  29. COSENTYX [Suspect]
     Active Substance: SECUKINUMAB
     Dosage: 300 MILLIGRAM, MONTHLY
     Dates: start: 20220909
  30. COSENTYX [Suspect]
     Active Substance: SECUKINUMAB
     Dosage: 300 MILLIGRAM, MONTHLY
     Dates: start: 20220909
  31. COSENTYX [Suspect]
     Active Substance: SECUKINUMAB
     Dosage: 300 MILLIGRAM, MONTHLY
     Route: 065
     Dates: start: 20220909
  32. COSENTYX [Suspect]
     Active Substance: SECUKINUMAB
     Dosage: 300 MILLIGRAM, MONTHLY
     Route: 065
     Dates: start: 20220909
  33. TALTZ [Suspect]
     Active Substance: IXEKIZUMAB
     Indication: Psoriatic arthropathy
     Dosage: 80 MILLIGRAM
     Route: 065
     Dates: start: 20201202
  34. TALTZ [Suspect]
     Active Substance: IXEKIZUMAB
     Dosage: 80 MILLIGRAM
     Dates: start: 20201202
  35. TALTZ [Suspect]
     Active Substance: IXEKIZUMAB
     Dosage: 80 MILLIGRAM
     Dates: start: 20201202
  36. TALTZ [Suspect]
     Active Substance: IXEKIZUMAB
     Dosage: 80 MILLIGRAM
     Route: 065
     Dates: start: 20201202
  37. TALTZ [Suspect]
     Active Substance: IXEKIZUMAB
     Dosage: 80 MILLIGRAM
     Route: 065
     Dates: start: 20201202, end: 20220829
  38. TALTZ [Suspect]
     Active Substance: IXEKIZUMAB
     Dosage: 80 MILLIGRAM
     Dates: start: 20201202, end: 20220829
  39. TALTZ [Suspect]
     Active Substance: IXEKIZUMAB
     Dosage: 80 MILLIGRAM
     Dates: start: 20201202, end: 20220829
  40. TALTZ [Suspect]
     Active Substance: IXEKIZUMAB
     Dosage: 80 MILLIGRAM
     Route: 065
     Dates: start: 20201202, end: 20220829
  41. TALTZ [Suspect]
     Active Substance: IXEKIZUMAB
     Dosage: 160 MILLIGRAM
     Route: 065
  42. TALTZ [Suspect]
     Active Substance: IXEKIZUMAB
     Dosage: 160 MILLIGRAM
     Route: 065
  43. TALTZ [Suspect]
     Active Substance: IXEKIZUMAB
     Dosage: 160 MILLIGRAM
  44. TALTZ [Suspect]
     Active Substance: IXEKIZUMAB
     Dosage: 160 MILLIGRAM
  45. NAPROXEN [Suspect]
     Active Substance: NAPROXEN
     Indication: Psoriatic arthropathy
     Dosage: 500 MILLIGRAM
     Dates: start: 20220904, end: 20220918
  46. NAPROXEN [Suspect]
     Active Substance: NAPROXEN
     Dosage: 500 MILLIGRAM
     Route: 065
     Dates: start: 20220904, end: 20220918
  47. NAPROXEN [Suspect]
     Active Substance: NAPROXEN
     Dosage: 500 MILLIGRAM
     Route: 065
     Dates: start: 20220904, end: 20220918
  48. NAPROXEN [Suspect]
     Active Substance: NAPROXEN
     Dosage: 500 MILLIGRAM
     Dates: start: 20220904, end: 20220918

REACTIONS (15)
  - Joint swelling [Unknown]
  - Meniscus injury [Not Recovered/Not Resolved]
  - Arthralgia [Unknown]
  - Psoriatic arthropathy [Unknown]
  - Cholelithiasis [Unknown]
  - Rotator cuff syndrome [Unknown]
  - Synovial cyst [Unknown]
  - Hepatic steatosis [Unknown]
  - Pancreatic steatosis [Unknown]
  - Duodenitis [Unknown]
  - Gastrooesophageal reflux disease [Unknown]
  - Reactive gastropathy [Unknown]
  - Nasopharyngitis [Unknown]
  - Upper respiratory tract infection [Unknown]
  - Spinal pain [Unknown]

NARRATIVE: CASE EVENT DATE: 20230116
